FAERS Safety Report 6883568-5 (Version None)
Quarter: 2010Q3

REPORT INFORMATION
  Report Type: 
  Country: None (occurrence: None)
  Receive Date: 20100708
  Receipt Date: 20100218
  Transmission Date: 20110219
  Serious: Yes (Other)
  Sender: FDA-Public Use
  Company Number: 2010022315

PATIENT
  Sex: Female

DRUGS (1)
  1. CHANTIX [Suspect]
     Indication: SMOKING CESSATION THERAPY
     Dosage: , ORAL
     Route: 048
     Dates: start: 20091001, end: 20100128

REACTIONS (4)
  - ABNORMAL BEHAVIOUR [None]
  - DEPRESSION [None]
  - MOOD SWINGS [None]
  - SUICIDE ATTEMPT [None]
